FAERS Safety Report 21816604 (Version 5)
Quarter: 2023Q4

REPORT INFORMATION
  Report Type: Spontaneous
  Country: IT (occurrence: IT)
  Receive Date: 20230104
  Receipt Date: 20231130
  Transmission Date: 20240110
  Serious: Yes (Hospitalization, Other)
  Sender: FDA-Public Use
  Company Number: IT-CELLTRION INC.-2022IT019911

PATIENT

DRUGS (8)
  1. RITUXIMAB [Suspect]
     Active Substance: RITUXIMAB
     Indication: Splenic marginal zone lymphoma
     Dosage: 375 MG/M2 (655.5 MG) (WEEKLY FOR CYCLE 1 AND THEN ON DAY 1 OF CYCLES 2 TO 5)
     Route: 042
     Dates: start: 20221103, end: 20221107
  2. LENALIDOMIDE [Suspect]
     Active Substance: LENALIDOMIDE
     Indication: Splenic marginal zone lymphoma
     Dosage: 20 MILLIGRAM, QD (ON DAY 1 TO 21 OF EACH 28-DAY CYCLES 1 TO 12)
     Route: 048
     Dates: start: 20221102, end: 20221107
  3. LENALIDOMIDE [Suspect]
     Active Substance: LENALIDOMIDE
     Dosage: UNK
     Route: 048
     Dates: start: 20221110
  4. TAFASITAMAB [Suspect]
     Active Substance: TAFASITAMAB
     Indication: Splenic marginal zone lymphoma
     Dosage: 12 MG/KG (744 MG) (WEEKLY FOR CYCLES 1 TO 3 AND THEN ON DAYS 1 AND 15 FOR CYCLES 4 TO 12)
     Route: 042
     Dates: start: 20221102, end: 20221104
  5. ACETAMINOPHEN [Concomitant]
     Active Substance: ACETAMINOPHEN
     Dosage: UNK
     Dates: start: 20221102, end: 20221102
  6. CHLORPHENIRAMINE [Concomitant]
     Active Substance: CHLORPHENIRAMINE
     Dosage: UNK
     Dates: start: 20221102, end: 20221102
  7. METHYLPREDNISOLONE [Concomitant]
     Active Substance: METHYLPREDNISOLONE
     Dosage: UNK
     Dates: start: 20221102, end: 20221102
  8. ENOXAPARIN SODIUM [Concomitant]
     Active Substance: ENOXAPARIN SODIUM
     Dosage: UNK
     Dates: start: 20221102

REACTIONS (3)
  - Splenic rupture [Recovered/Resolved]
  - Sepsis [Recovered/Resolved]
  - Intentional product use issue [Unknown]

NARRATIVE: CASE EVENT DATE: 20221104
